FAERS Safety Report 7146493-0 (Version None)
Quarter: 2010Q4

REPORT INFORMATION
  Report Type: 
  Country: None (occurrence: None)
  Receive Date: 20101208
  Receipt Date: 20101123
  Transmission Date: 20110411
  Serious: No
  Sender: FDA-Public Use
  Company Number: US-B.I. PHARMACEUTICALS,INC./RIDGEFIELD-2010-BP-13322BP

PATIENT
  Sex: Female

DRUGS (20)
  1. PRADAXA [Suspect]
     Dosage: 300 MG
     Route: 048
     Dates: start: 20101116
  2. COREG [Concomitant]
     Indication: HYPERTENSION
  3. LASIX [Concomitant]
  4. STALEVO 100 [Concomitant]
     Indication: PARKINSON'S DISEASE
     Dosage: 125 MG
  5. SEROQUEL [Concomitant]
     Indication: PARKINSON'S DISEASE
  6. REQUIP XL [Concomitant]
  7. KEPPRA [Concomitant]
  8. EFFEXOR [Concomitant]
  9. RESTORIL [Concomitant]
  10. CALCITONIN SALMON [Concomitant]
     Indication: OSTEOPOROSIS
  11. COMPAZINE [Concomitant]
  12. ULTRAM [Concomitant]
  13. ULTRASE MT20 [Concomitant]
  14. FLUTICASONE PROPIONATE [Concomitant]
  15. CLOBETASOL [Concomitant]
  16. FLUOCINONIDE [Concomitant]
  17. ZOFRAN [Concomitant]
  18. VITAMIN D + CALCIUM [Concomitant]
  19. CENTRUM [Concomitant]
  20. MAGNESIUM [Concomitant]

REACTIONS (1)
  - HALLUCINATION [None]
